FAERS Safety Report 7816195-3 (Version None)
Quarter: 2011Q4

REPORT INFORMATION
  Report Type: 
  Country: None (occurrence: None)
  Receive Date: 20111015
  Receipt Date: 20111010
  Transmission Date: 20120403
  Serious: Yes (Other)
  Sender: FDA-Public Use
  Company Number: US-ROCHE-790556

PATIENT
  Sex: Female

DRUGS (1)
  1. AVASTIN [Suspect]
     Indication: MACULAR DEGENERATION
     Dosage: FREQUENCY:ONCE
     Route: 050

REACTIONS (3)
  - PRODUCT QUALITY ISSUE [None]
  - BLINDNESS UNILATERAL [None]
  - ENDOPHTHALMITIS [None]
